FAERS Safety Report 25957936 (Version 1)
Quarter: 2025Q4

REPORT INFORMATION
  Report Type: Spontaneous
  Country: EU (occurrence: EU)
  Receive Date: 20251024
  Receipt Date: 20251024
  Transmission Date: 20260117
  Serious: Yes (Hospitalization)
  Sender: JOHNSON AND JOHNSON
  Company Number: EU-JNJFOC-20251020974

PATIENT
  Age: 41 Year
  Sex: Male
  Weight: 163 kg

DRUGS (3)
  1. INFLIXIMAB [Suspect]
     Active Substance: INFLIXIMAB
     Indication: Colitis ulcerative
     Route: 041
  2. ESCITALOPRAM OXALATE [Concomitant]
     Active Substance: ESCITALOPRAM OXALATE
     Indication: Anxiety
  3. WEGOVY [Concomitant]
     Active Substance: SEMAGLUTIDE
     Indication: Overweight
     Route: 058

REACTIONS (5)
  - Drug-induced liver injury [Unknown]
  - Acute hepatic failure [Unknown]
  - Jaundice [Unknown]
  - Vanishing bile duct syndrome [Unknown]
  - Off label use [Unknown]
